FAERS Safety Report 17164545 (Version 1)
Quarter: 2019Q4

REPORT INFORMATION
  Report Type: Spontaneous
  Country: US (occurrence: US)
  Receive Date: 20191217
  Receipt Date: 20191217
  Transmission Date: 20200122
  Serious: No
  Sender: FDA-Public Use
  Company Number: US-PERRIGO-19US007199

PATIENT
  Age: 75 Year
  Sex: Female

DRUGS (3)
  1. NYSTATIN. [Suspect]
     Active Substance: NYSTATIN
     Indication: BLISTER
     Dosage: UNKNOWN, BID
     Route: 061
     Dates: start: 20181130, end: 2018
  2. NYSTATIN. [Suspect]
     Active Substance: NYSTATIN
     Dosage: UNKNOWN, BID
     Route: 061
     Dates: end: 201906
  3. LEVOTHYROXINE. [Concomitant]
     Active Substance: LEVOTHYROXINE
     Indication: HYPOTHYROIDISM
     Dosage: UNK
     Route: 065

REACTIONS (2)
  - Condition aggravated [Unknown]
  - Off label use [Recovered/Resolved]

NARRATIVE: CASE EVENT DATE: 20181130
